FAERS Safety Report 6731904-2 (Version None)
Quarter: 2010Q2

REPORT INFORMATION
  Report Type: 
  Country: None (occurrence: None)
  Receive Date: 20100517
  Receipt Date: 20100505
  Transmission Date: 20101027
  Serious: Yes (Hospitalization, Other)
  Sender: FDA-Public Use
  Company Number: LEO-2010-00397

PATIENT
  Age: 46 Year
  Sex: Female
  Weight: 99 kg

DRUGS (8)
  1. INNOHEP [Suspect]
     Indication: HYPERCOAGULATION
     Dosage: 4500 IU (45OO IU, 1 IN 1 D)
     Dates: start: 20051012
  2. INNOHEP [Suspect]
     Indication: PROPHYLAXIS
     Dosage: 4500 IU (45OO IU, 1 IN 1 D)
     Dates: start: 20051012
  3. ASPIRIN [Suspect]
     Dosage: 75 MG
     Dates: start: 20051012
  4. PROGESTERONE [Concomitant]
  5. ESTRADIOL [Concomitant]
  6. VITAMIN SUPPLEMENT (VITAMINS NOS) [Concomitant]
  7. MORPHINE [Concomitant]
  8. MISOPROSTOL [Concomitant]

REACTIONS (4)
  - DRUG EXPOSURE DURING PREGNANCY [None]
  - POSTPARTUM HAEMORRHAGE [None]
  - RETAINED PLACENTA OR MEMBRANES [None]
  - STILLBIRTH [None]
